FAERS Safety Report 17830878 (Version 3)
Quarter: 2021Q1

REPORT INFORMATION
  Report Type: Other
  Country: DE (occurrence: DE)
  Receive Date: 20200527
  Receipt Date: 20210317
  Transmission Date: 20210419
  Serious: No
  Sender: FDA-Public Use
  Company Number: DE-ROCHE-2608931

PATIENT
  Age: 46 Year
  Sex: Female
  Weight: 65 kg

DRUGS (16)
  1. TRAMAGIT [Concomitant]
     Indication: PAIN
     Dosage: DEFINITION OF THE INTERVAL: AS REQUIRED
     Dates: start: 20130103
  2. NOVALGIN (METAMIZOLE SODIUM) [Concomitant]
     Active Substance: METAMIZOLE SODIUM
     Indication: PAIN
     Route: 048
     Dates: start: 20150825
  3. PREDNISOLONE. [Concomitant]
     Active Substance: PREDNISOLONE
     Route: 042
     Dates: start: 20181204, end: 20181204
  4. AERIUS [Concomitant]
     Route: 048
     Dates: start: 20180605, end: 20180607
  5. OCRELIZUMAB. [Suspect]
     Active Substance: OCRELIZUMAB
     Indication: RELAPSING MULTIPLE SCLEROSIS
     Route: 042
     Dates: start: 20180524, end: 20180606
  6. PREDNISOLONE. [Concomitant]
     Active Substance: PREDNISOLONE
     Route: 042
     Dates: start: 20180606, end: 20180606
  7. OCRELIZUMAB. [Suspect]
     Active Substance: OCRELIZUMAB
     Route: 042
     Dates: start: 20181204
  8. RANITIDINE. [Concomitant]
     Active Substance: RANITIDINE
     Route: 048
     Dates: start: 20181203, end: 20181205
  9. AERIUS [Concomitant]
     Route: 048
     Dates: start: 20180523, end: 20180525
  10. AERIUS [Concomitant]
     Route: 048
     Dates: start: 20181203, end: 20181205
  11. FAMPYRA [Concomitant]
     Active Substance: DALFAMPRIDINE
     Route: 048
     Dates: start: 20110927
  12. RANITIDINE. [Concomitant]
     Active Substance: RANITIDINE
     Route: 048
     Dates: start: 20180523, end: 20180525
  13. RANITIDINE. [Concomitant]
     Active Substance: RANITIDINE
     Route: 048
     Dates: start: 20180605, end: 20180607
  14. DEKRISTOL [Concomitant]
     Active Substance: CHOLECALCIFEROL
     Indication: VITAMIN D DEFICIENCY
     Route: 048
     Dates: start: 20161212
  15. PREDNISOLUT [Concomitant]
     Active Substance: PREDNISOLONE
     Route: 042
     Dates: start: 20180524, end: 20180524
  16. MAGNESIUM [Concomitant]
     Active Substance: MAGNESIUM

REACTIONS (1)
  - Herpes simplex [Unknown]

NARRATIVE: CASE EVENT DATE: 202005
